FAERS Safety Report 6727548-9 (Version None)
Quarter: 2010Q2

REPORT INFORMATION
  Report Type: 
  Country: None (occurrence: None)
  Receive Date: 20100517
  Receipt Date: 20100511
  Transmission Date: 20101027
  Serious: Yes (Hospitalization)
  Sender: FDA-Public Use
  Company Number: GB-SANOFI-AVENTIS-2010SA027014

PATIENT
  Age: 64 Year
  Sex: Female

DRUGS (3)
  1. INDAPAMIDE [Suspect]
     Indication: HYPERTENSION
     Route: 048
     Dates: end: 20040101
  2. COZAAR [Suspect]
     Indication: HYPERTENSION
     Route: 048
  3. METFORMIN HYDROCHLORIDE [Concomitant]

REACTIONS (3)
  - BLOOD PRESSURE INCREASED [None]
  - HAEMORRHAGIC STROKE [None]
  - VISUAL IMPAIRMENT [None]
